FAERS Safety Report 5732727-3 (Version None)
Quarter: 2008Q2

REPORT INFORMATION
  Report Type: 
  Country: None (occurrence: None)
  Receive Date: 20080509
  Receipt Date: 20080407
  Transmission Date: 20081010
  Serious: No
  Sender: FDA-Public Use
  Company Number: US-BAYER-200819738NA

PATIENT
  Age: 24 Year
  Sex: Female
  Weight: 74 kg

DRUGS (3)
  1. MIRENA [Suspect]
     Indication: CONTRACEPTION
     Route: 015
     Dates: start: 20061201
  2. IBUPROFEN TABLETS [Concomitant]
  3. MULTI-VITAMIN [Concomitant]

REACTIONS (1)
  - WEIGHT INCREASED [None]
